FAERS Safety Report 4780927-1 (Version None)
Quarter: 2005Q3

REPORT INFORMATION
  Report Type: 
  Country: None (occurrence: None)
  Receive Date: 20050926
  Receipt Date: 20050909
  Transmission Date: 20060218
  Serious: Yes (Other)
  Sender: FDA-Public Use
  Company Number: B0394506A

PATIENT
  Age: 51 Year
  Sex: Male

DRUGS (9)
  1. FLOVENT [Suspect]
     Indication: RESPIRATORY TRACT INFECTION
     Dosage: 500 UG, TWICE PER DAY; UNKNOWN
  2. RITONAVIR (FORMULATION UNKNOWN) (RITONAVIR) [Suspect]
  3. LOPINAVIR [Concomitant]
  4. STAVUDINE [Concomitant]
  5. LAMIVUDINE [Concomitant]
  6. TENOFOVIR [Concomitant]
  7. ATAZANAVIR [Concomitant]
  8. GLIBENCLAMIDE [Concomitant]
  9. ROSIGLITAZONE MALEATE [Concomitant]

REACTIONS (17)
  - ABDOMINAL DISTENSION [None]
  - ADRENAL INSUFFICIENCY [None]
  - ASTHENIA [None]
  - BLOOD GLUCOSE INCREASED [None]
  - BRONCHOSPASM [None]
  - CACHEXIA [None]
  - CUSHING'S SYNDROME [None]
  - DIZZINESS [None]
  - DRUG INTERACTION [None]
  - EUPHORIC MOOD [None]
  - FATIGUE [None]
  - GLYCOSYLATED HAEMOGLOBIN INCREASED [None]
  - IRRITABILITY [None]
  - LIPODYSTROPHY ACQUIRED [None]
  - MOOD ALTERED [None]
  - MUSCLE SPASMS [None]
  - RESPIRATORY TRACT INFECTION [None]
